FAERS Safety Report 9411727 (Version 2)
Quarter: 2013Q3

REPORT INFORMATION
  Report Type: Spontaneous
  Country: US (occurrence: None)
  Receive Date: 20130507
  Receipt Date: 20130815
  Transmission Date: 20140515
  Serious: Yes (Hospitalization, Other)
  Sender: FDA-Public Use
  Company Number: ADR-2012-01497

PATIENT
  Sex: Male

DRUGS (3)
  1. LIORESAL INTRATHECAL (BACLOFEN INJECTION) 2000 MCG/ML [Suspect]
     Indication: MUSCLE SPASTICITY
  2. ORAL BACLOFEN [Concomitant]
  3. ANTIBIOTICS [Concomitant]

REACTIONS (8)
  - Bacterial infection [None]
  - Gait disturbance [None]
  - Medical device complication [None]
  - Hypoaesthesia [None]
  - Hypoaesthesia [None]
  - Infusion site infection [None]
  - Chest pain [None]
  - Hypoaesthesia [None]
